FAERS Safety Report 25750019 (Version 2)
Quarter: 2025Q4

REPORT INFORMATION
  Report Type: Report from Study
  Country: US (occurrence: US)
  Receive Date: 20250902
  Receipt Date: 20251201
  Transmission Date: 20260117
  Serious: No
  Sender: ACADIA PHARMACEUTICALS
  Company Number: US-ACADIA PHARMACEUTICALS INC.-ACA-2025-PIM-009675

PATIENT
  Age: 86 Year
  Sex: Female

DRUGS (8)
  1. NUPLAZID [Suspect]
     Active Substance: PIMAVANSERIN TARTRATE
     Indication: Hallucination
     Dosage: 34 MILLIGRAM, QD
     Route: 048
     Dates: start: 20250731, end: 20250826
  2. NUPLAZID [Suspect]
     Active Substance: PIMAVANSERIN TARTRATE
     Indication: Parkinson^s disease
  3. ALLEGRA ALLERGY [Concomitant]
     Active Substance: FEXOFENADINE HYDROCHLORIDE
     Dosage: UNK
  4. ASPIRIN [Concomitant]
     Active Substance: ASPIRIN
     Dosage: UNK
  5. LOVASTATIN [Concomitant]
     Active Substance: LOVASTATIN
     Dosage: UNK
  6. PANTOPRAZOLE [Concomitant]
     Active Substance: PANTOPRAZOLE
     Dosage: UNK
  7. SINEMET [Concomitant]
     Active Substance: CARBIDOPA\LEVODOPA
     Dosage: UNK
  8. SINEMET CR [Concomitant]
     Active Substance: CARBIDOPA\LEVODOPA
     Dosage: UNK

REACTIONS (2)
  - Peripheral swelling [Not Recovered/Not Resolved]
  - Product dose omission issue [Unknown]

NARRATIVE: CASE EVENT DATE: 20250801
